FAERS Safety Report 15614799 (Version 3)
Quarter: 2020Q2

REPORT INFORMATION
  Report Type: Report from Study
  Country: JP (occurrence: JP)
  Receive Date: 20181113
  Receipt Date: 20200630
  Transmission Date: 20200713
  Serious: Yes (Death, Hospitalization, Other)
  Sender: FDA-Public Use
  Company Number: JP-BRISTOL-MYERS SQUIBB COMPANY-BMS-2018-106644

PATIENT
  Age: 59 Year
  Sex: Male
  Weight: 53 kg

DRUGS (1)
  1. NIVOLUMAB [Suspect]
     Active Substance: NIVOLUMAB
     Indication: HEAD AND NECK CANCER
     Dosage: 117 MILLIGRAM
     Route: 041
     Dates: start: 20170511, end: 20180410

REACTIONS (11)
  - Cholangitis sclerosing [Fatal]
  - Prescribed overdose [Unknown]
  - Hepatic failure [Fatal]
  - Duodenitis [Recovering/Resolving]
  - Colitis [Recovered/Resolved]
  - Nausea [Recovering/Resolving]
  - Liver abscess [Unknown]
  - Escherichia infection [Unknown]
  - Respiratory disorder [Unknown]
  - Vomiting [Recovering/Resolving]
  - Coma hepatic [Unknown]

NARRATIVE: CASE EVENT DATE: 20170725
